FAERS Safety Report 7428499-7 (Version None)
Quarter: 2011Q2

REPORT INFORMATION
  Report Type: 
  Country: None (occurrence: None)
  Receive Date: 20110421
  Receipt Date: 20110408
  Transmission Date: 20111010
  Serious: Yes (Hospitalization)
  Sender: FDA-Public Use
  Company Number: PHHY2011ES29574

PATIENT
  Age: 85 Year
  Sex: Male

DRUGS (5)
  1. PARACETAMOL [Concomitant]
     Indication: PAIN
     Dosage: 2000 MG, QD
     Route: 048
  2. DIAZEPAM [Concomitant]
     Indication: PAIN
     Dosage: 5 MG, QD
     Route: 048
  3. EXFORGE [Suspect]
     Indication: HYPERTENSION
     Dosage: 10 MG, DAILY
     Route: 048
     Dates: start: 20081101, end: 20110409
  4. OMEPRAZOLE [Concomitant]
     Dosage: 20 MG, DAILY
  5. DICLOFENAC [Suspect]
     Indication: PAIN
     Dosage: UNK
     Route: 048
     Dates: start: 20100216, end: 20110409

REACTIONS (6)
  - HAEMOLYTIC ANAEMIA [None]
  - JAUNDICE [None]
  - COOMBS TEST POSITIVE [None]
  - HAEMOGLOBIN DECREASED [None]
  - BLOOD BILIRUBIN INCREASED [None]
  - CHOLURIA [None]
